FAERS Safety Report 25495011 (Version 1)
Quarter: 2025Q2

REPORT INFORMATION
  Report Type: Report from Study
  Country: GB (occurrence: GB)
  Receive Date: 20250630
  Receipt Date: 20250630
  Transmission Date: 20250716
  Serious: Yes (Other)
  Sender: PFIZER
  Company Number: GB-PFIZER INC-202500129804

PATIENT
  Age: 34 Year
  Sex: Male

DRUGS (1)
  1. KETAMINE HYDROCHLORIDE [Suspect]
     Active Substance: KETAMINE HYDROCHLORIDE

REACTIONS (4)
  - Drug abuse [Unknown]
  - Toxicity to various agents [Unknown]
  - Obstructive nephropathy [Unknown]
  - Cystitis [Unknown]
